FAERS Safety Report 25097901 (Version 2)
Quarter: 2025Q2

REPORT INFORMATION
  Report Type: Report from Study
  Country: TW (occurrence: TW)
  Receive Date: 20250320
  Receipt Date: 20250403
  Transmission Date: 20250717
  Serious: Yes (Hospitalization)
  Sender: JOHNSON AND JOHNSON
  Company Number: TW-JNJFOC-20250352550

PATIENT
  Age: 43 Year
  Sex: Male
  Weight: 70 kg

DRUGS (1)
  1. SIMPONI [Suspect]
     Active Substance: GOLIMUMAB
     Indication: Psoriatic arthropathy
     Route: 058
     Dates: start: 20250214

REACTIONS (1)
  - Cellulitis [Recovered/Resolved]

NARRATIVE: CASE EVENT DATE: 20250314
